FAERS Safety Report 8385639 (Version 3)
Quarter: 2013Q2

REPORT INFORMATION
  Report Type: Spontaneous
  Country: US (occurrence: None)
  Receive Date: 20111221
  Receipt Date: 20121227
  Transmission Date: 20140414
  Serious: Yes (Hospitalization)
  Sender: FDA-Public Use
  Company Number: PHHY2010US72020

PATIENT
  Age: 30 Year
  Sex: Male
  Weight: 69 kg

DRUGS (2)
  1. EXJADE (*CGP 72670*) DISPERSIBLE TABLET, 250MG [Suspect]
     Indication: MYELODYSPLASTIC SYNDROME
     Dosage: 1250 MG/DAY, ORAL
     Route: 048
     Dates: start: 20100901
  2. EXJADE (*CGP 72670*) DISPERSIBLE TABLET, 250MG [Suspect]
     Indication: SICKLE CELL ANAEMIA
     Dosage: 1250 MG/DAY, ORAL
     Route: 048
     Dates: start: 20100901

REACTIONS (2)
  - SICKLE CELL ANAEMIA WITH CRISIS [None]
  - Pain [None]
